FAERS Safety Report 17297723 (Version 1)
Quarter: 2020Q1

REPORT INFORMATION
  Report Type: Spontaneous
  Country: CZ (occurrence: CZ)
  Receive Date: 20200121
  Receipt Date: 20200121
  Transmission Date: 20200409
  Serious: Yes (Hospitalization, Other)
  Sender: FDA-Public Use
  Company Number: NVSC2020CZ012215

PATIENT
  Sex: Male

DRUGS (17)
  1. LOSARTAN. [Suspect]
     Active Substance: LOSARTAN
     Dosage: 25 MG
     Route: 065
     Dates: start: 2011, end: 20130502
  2. CARVEDIOL [Concomitant]
     Active Substance: CARVEDILOL
     Dosage: 25 MG
     Route: 065
     Dates: start: 2011, end: 20130502
  3. LOSARTAN. [Suspect]
     Active Substance: LOSARTAN
     Dosage: 100 MG
     Route: 065
     Dates: start: 20110607, end: 2011
  4. LOSARTAN. [Suspect]
     Active Substance: LOSARTAN
     Dosage: 75 MG
     Route: 065
     Dates: start: 20130502, end: 20181207
  5. CARVEDIOL [Concomitant]
     Active Substance: CARVEDILOL
     Dosage: 50 MG
     Route: 065
     Dates: start: 20110607, end: 2011
  6. SPIRONOLACTONE. [Concomitant]
     Active Substance: SPIRONOLACTONE
     Indication: PRODUCT USED FOR UNKNOWN INDICATION
     Dosage: 25 MG
     Route: 065
     Dates: end: 2011
  7. SPIRONOLACTONE. [Concomitant]
     Active Substance: SPIRONOLACTONE
     Dosage: 50 UNK
     Route: 065
     Dates: start: 2011, end: 20130502
  8. CARVEDIOL [Concomitant]
     Active Substance: CARVEDILOL
     Indication: PRODUCT USED FOR UNKNOWN INDICATION
     Dosage: 12.5 MG
     Route: 065
     Dates: start: 20081010
  9. CARVEDIOL [Concomitant]
     Active Substance: CARVEDILOL
     Dosage: 18.5 MG
     Route: 065
     Dates: start: 20100112
  10. ACETYLSALICYLIC ACID [Concomitant]
     Active Substance: ASPIRIN
     Indication: PRODUCT USED FOR UNKNOWN INDICATION
     Dosage: UNK
     Route: 065
  11. LOSARTAN. [Suspect]
     Active Substance: LOSARTAN
     Indication: PRODUCT USED FOR UNKNOWN INDICATION
     Dosage: 75 MG
     Route: 065
     Dates: start: 20110112, end: 20110607
  12. CARVEDIOL [Concomitant]
     Active Substance: CARVEDILOL
     Dosage: 50 MG
     Route: 065
     Dates: start: 20130502
  13. FURON [Concomitant]
     Active Substance: FUROSEMIDE
     Dosage: 40 MG
     Route: 065
     Dates: start: 20130502
  14. CARVEDIOL [Concomitant]
     Active Substance: CARVEDILOL
     Dosage: 25 MG
     Route: 065
     Dates: end: 20110607
  15. SPIRONOLACTONE. [Concomitant]
     Active Substance: SPIRONOLACTONE
     Dosage: 25 MG
     Route: 065
     Dates: start: 20130502
  16. FURON [Concomitant]
     Active Substance: FUROSEMIDE
     Indication: PRODUCT USED FOR UNKNOWN INDICATION
     Dosage: 20 MG
     Route: 065
     Dates: start: 20110607, end: 2011
  17. FURON [Concomitant]
     Active Substance: FUROSEMIDE
     Dosage: 80 MG
     Route: 065
     Dates: start: 2011, end: 20130502

REACTIONS (3)
  - Pulmonary hypertension [Unknown]
  - Venous oxygen partial pressure decreased [Recovering/Resolving]
  - Cardiac failure [Unknown]

NARRATIVE: CASE EVENT DATE: 20110607
